FAERS Safety Report 4385522-4 (Version None)
Quarter: 2004Q2

REPORT INFORMATION
  Report Type: 
  Country: None (occurrence: None)
  Receive Date: 20040628
  Receipt Date: 20040621
  Transmission Date: 20050107
  Serious: Yes (Hospitalization)
  Sender: FDA-Public Use
  Company Number: FR-BRISTOL-MYERS SQUIBB COMPANY-12621314

PATIENT
  Age: 47 Year
  Sex: Male
  Weight: 70 kg

DRUGS (3)
  1. SUSTIVA [Suspect]
     Indication: HIV INFECTION
     Route: 048
     Dates: start: 20030929, end: 20031028
  2. NORSET [Concomitant]
  3. COMBIVIR [Concomitant]
     Dates: start: 20000615

REACTIONS (4)
  - ABNORMAL DREAMS [None]
  - AMNESIA [None]
  - ATAXIA [None]
  - HYPERSOMNIA [None]
